FAERS Safety Report 7911649-3 (Version None)
Quarter: 2011Q4

REPORT INFORMATION
  Report Type: 
  Country: None (occurrence: None)
  Receive Date: 20111114
  Receipt Date: 20111114
  Transmission Date: 20120403
  Serious: Yes (Other)
  Sender: FDA-Public Use
  Company Number: None

PATIENT
  Age: 82 Year
  Sex: Male
  Weight: 99.79 kg

DRUGS (1)
  1. TORSEMIDE [Suspect]
     Indication: RENAL IMPAIRMENT
     Dosage: 1
     Route: 048
     Dates: start: 20080101, end: 20111110

REACTIONS (10)
  - DIPLOPIA [None]
  - ASTHENIA [None]
  - DEAFNESS [None]
  - ERECTILE DYSFUNCTION [None]
  - FATIGUE [None]
  - SOMNOLENCE [None]
  - OEDEMA PERIPHERAL [None]
  - SYNCOPE [None]
  - DIZZINESS [None]
  - ORTHOSTATIC HYPOTENSION [None]
